FAERS Safety Report 23899145 (Version 2)
Quarter: 2025Q1

REPORT INFORMATION
  Report Type: Spontaneous
  Country: US (occurrence: US)
  Receive Date: 20240526
  Receipt Date: 20250212
  Transmission Date: 20250409
  Serious: Yes (Hospitalization)
  Sender: DR REDDYS
  Company Number: None

PATIENT
  Age: 32 Year
  Sex: Male

DRUGS (3)
  1. AMPHETAMINE [Suspect]
     Active Substance: AMPHETAMINE
     Indication: Lethargy
  2. DEXTROAMPHETAMINE [Suspect]
     Active Substance: DEXTROAMPHETAMINE
     Indication: Lethargy
  3. NALOXONE [Suspect]
     Active Substance: NALOXONE
     Indication: Overdose
     Route: 042

REACTIONS (4)
  - Pulmonary oedema [Unknown]
  - Acute respiratory failure [Unknown]
  - Drug ineffective [Unknown]
  - Intentional product misuse [Unknown]
